FAERS Safety Report 8092035-5 (Version None)
Quarter: 2012Q1

REPORT INFORMATION
  Report Type: 
  Country: None (occurrence: None)
  Receive Date: 20120129
  Receipt Date: 20111122
  Transmission Date: 20120608
  Serious: Yes (Other)
  Sender: FDA-Public Use
  Company Number: US-ABBOTT-11P-163-0869754-00

PATIENT
  Sex: Male
  Weight: 9.988 kg

DRUGS (16)
  1. ASPIRIN [Concomitant]
     Indication: CARDIAC DISORDER
  2. VITAMIN B COMPLEX CAP [Concomitant]
     Indication: VITAMIN SUPPLEMENTATION
  3. VITAMIN D [Concomitant]
     Indication: VITAMIN SUPPLEMENTATION
  4. METFORMIN HCL [Concomitant]
     Indication: DIABETES MELLITUS
  5. APRAZOLAM [Concomitant]
     Indication: ANXIETY
  6. LOVASTATIN [Concomitant]
     Indication: HYPERTENSION
  7. HUMIRA [Suspect]
     Indication: PSORIATIC ARTHROPATHY
     Dates: start: 20090101, end: 20111001
  8. GLIMIPIRIDE [Concomitant]
     Indication: DIABETES MELLITUS
  9. MAGNESIUM [Concomitant]
     Indication: MINERAL SUPPLEMENTATION
  10. FOLIC ACID [Concomitant]
     Indication: VITAMIN SUPPLEMENTATION
  11. FUROSEMIDE [Concomitant]
     Indication: CARDIAC DISORDER
  12. LOSARTAN POTASSIUM [Concomitant]
     Indication: CARDIAC DISORDER
  13. CRANBERRY [Concomitant]
     Indication: SUPPLEMENTATION THERAPY
  14. ATENOLOL [Concomitant]
     Indication: CARDIAC DISORDER
  15. PLAVIX [Concomitant]
     Indication: CORONARY ARTERIAL STENT INSERTION
  16. SAW PALMETTO [Concomitant]
     Indication: SUPPLEMENTATION THERAPY

REACTIONS (3)
  - MYALGIA [None]
  - BUTTERFLY RASH [None]
  - SYSTEMIC LUPUS ERYTHEMATOSUS RASH [None]
